FAERS Safety Report 7411402-3 (Version None)
Quarter: 2011Q2

REPORT INFORMATION
  Report Type: 
  Country: None (occurrence: None)
  Receive Date: 20110413
  Receipt Date: 20100720
  Transmission Date: 20111010
  Serious: Yes (Other)
  Sender: FDA-Public Use
  Company Number: US-BRISTOL-MYERS SQUIBB COMPANY-15201569

PATIENT
  Sex: Male

DRUGS (2)
  1. ERBITUX [Suspect]
     Indication: COLORECTAL CANCER
     Dosage: INDUCTION DOSE 400 MG/M2
     Route: 042
  2. CAMPTOSAR [Suspect]
     Indication: COLON CANCER

REACTIONS (2)
  - RASH [None]
  - ACUTE INTERSTITIAL PNEUMONITIS [None]
